FAERS Safety Report 4405803-5 (Version None)
Quarter: 2004Q3

REPORT INFORMATION
  Report Type: 
  Country: None (occurrence: None)
  Receive Date: 20040723
  Receipt Date: 20031222
  Transmission Date: 20050211
  Serious: No
  Sender: FDA-Public Use
  Company Number: US-GLAXOSMITHKLINE-A0443914A

PATIENT
  Age: 76 Year
  Sex: Male

DRUGS (6)
  1. AVANDIA [Suspect]
     Dosage: 8MG PER DAY
     Route: 048
  2. CARDURA [Concomitant]
  3. GLUCOTROL [Concomitant]
  4. LOTENSIN [Concomitant]
  5. ZOCOR [Concomitant]
  6. ZYLOPRIM [Concomitant]

REACTIONS (1)
  - WEIGHT INCREASED [None]
